FAERS Safety Report 17957244 (Version 2)
Quarter: 2020Q3

REPORT INFORMATION
  Report Type: Report from Study
  Country: AR (occurrence: AR)
  Receive Date: 20200629
  Receipt Date: 20200816
  Transmission Date: 20201103
  Serious: Yes (Hospitalization, Other)
  Sender: FDA-Public Use
  Company Number: AR-BRISTOL-MYERS SQUIBB COMPANY-BMS-2020-041135

PATIENT
  Age: 76 Year
  Sex: Female

DRUGS (1)
  1. APIXABAN [Suspect]
     Active Substance: APIXABAN
     Indication: CEREBROVASCULAR ACCIDENT PROPHYLAXIS
     Dosage: 5 MILLIGRAM
     Route: 065
     Dates: start: 20200214, end: 2020

REACTIONS (1)
  - Neoplasm [Not Recovered/Not Resolved]

NARRATIVE: CASE EVENT DATE: 20200413
